FAERS Safety Report 7980205-3 (Version None)
Quarter: 2011Q4

REPORT INFORMATION
  Report Type: 
  Country: None (occurrence: None)
  Receive Date: 20111214
  Receipt Date: 20111205
  Transmission Date: 20120403
  Serious: Yes (Other)
  Sender: FDA-Public Use
  Company Number: CA-ASTRAZENECA-2011SE35711

PATIENT
  Age: 40 Year
  Sex: Female

DRUGS (2)
  1. SYMBICORT [Suspect]
     Dosage: 1 INHALATION, 200 MCG BID
     Route: 055
  2. SYMBICORT [Suspect]
     Dosage: 3 INHALATIONS DAILY
     Route: 055

REACTIONS (2)
  - DRUG EFFECT DECREASED [None]
  - DYSPNOEA [None]
